APPROVED DRUG PRODUCT: CYPROHEPTADINE HYDROCHLORIDE
Active Ingredient: CYPROHEPTADINE HYDROCHLORIDE
Strength: 2MG/5ML
Dosage Form/Route: SYRUP;ORAL
Application: A205431 | Product #001
Applicant: TRIS PHARMA INC
Approved: Dec 21, 2021 | RLD: No | RS: No | Type: DISCN